FAERS Safety Report 10571350 (Version 1)
Quarter: 2014Q4

REPORT INFORMATION
  Report Type: Spontaneous
  Country: US (occurrence: US)
  Receive Date: 20141107
  Receipt Date: 20141107
  Transmission Date: 20150529
  Serious: Yes (Hospitalization, Other)
  Sender: FDA-Public Use
  Company Number: US-GLAXOSMITHKLINE-US2014GSK018201

PATIENT
  Age: 16 Year
  Sex: Female

DRUGS (4)
  1. BEER [Suspect]
     Active Substance: ALCOHOL
     Indication: PRODUCT USED FOR UNKNOWN INDICATION
  2. PENTOBARBITAL [Suspect]
     Active Substance: PENTOBARBITAL
     Indication: PRODUCT USED FOR UNKNOWN INDICATION
     Route: 048
  3. ONDANSETRON [Suspect]
     Active Substance: ONDANSETRON
     Indication: PRODUCT USED FOR UNKNOWN INDICATION
     Dosage: 1 UNK, UNK
  4. ZOLPIDEM [Suspect]
     Active Substance: ZOLPIDEM\ZOLPIDEM TARTRATE
     Indication: PRODUCT USED FOR UNKNOWN INDICATION
     Route: 048

REACTIONS (15)
  - Intentional overdose [Recovering/Resolving]
  - Brain injury [Unknown]
  - Chills [Unknown]
  - Joint contracture [Unknown]
  - Blister [Unknown]
  - Suicide attempt [Unknown]
  - Unresponsive to stimuli [Unknown]
  - Coma [Recovering/Resolving]
  - Pallor [Unknown]
  - Erythema [Unknown]
  - Pain in extremity [Unknown]
  - Apnoea [Unknown]
  - Peripheral coldness [Unknown]
  - Dizziness [Unknown]
  - Balance disorder [Unknown]
